FAERS Safety Report 22245909 (Version 3)
Quarter: 2024Q2

REPORT INFORMATION
  Report Type: Report from Study
  Country: US (occurrence: US)
  Receive Date: 20230424
  Receipt Date: 20240530
  Transmission Date: 20240716
  Serious: Yes (Hospitalization, Congenital Anomaly)
  Sender: FDA-Public Use
  Company Number: US-UCBSA-2023020270

PATIENT
  Age: 0 Year
  Sex: Male
  Weight: 3.217 kg

DRUGS (28)
  1. CERTOLIZUMAB PEGOL [Suspect]
     Active Substance: CERTOLIZUMAB PEGOL
     Indication: Rheumatoid arthritis
     Dosage: 200 MILLIGRAM, 2X/MONTH
     Route: 064
     Dates: start: 202103, end: 20211208
  2. ASPIRIN [Concomitant]
     Active Substance: ASPIRIN
     Indication: High risk pregnancy
     Dosage: 81 MILLIGRAM
     Route: 064
     Dates: start: 20210605, end: 20211207
  3. BENADRYL [Concomitant]
     Active Substance: DIPHENHYDRAMINE HYDROCHLORIDE
     Indication: Product used for unknown indication
     Dosage: 2 PILL
     Route: 064
     Dates: start: 20210717, end: 20211120
  4. CAFFEINE [Concomitant]
     Active Substance: CAFFEINE
     Indication: Product used for unknown indication
     Dosage: UNK
     Route: 064
     Dates: start: 20210313, end: 20211208
  5. FISH OIL [Concomitant]
     Active Substance: FISH OIL
     Indication: Prophylaxis
     Dosage: 1300 MILLIGRAM
     Route: 064
     Dates: start: 20210313, end: 20211208
  6. INFLUENZA VIRUS VACCINE [Concomitant]
     Active Substance: INFLUENZA VIRUS VACCINE
     Indication: Product used for unknown indication
     Dosage: UNK
     Route: 064
  7. HYDROXYCHLOROQUINE SULFATE [Concomitant]
     Active Substance: HYDROXYCHLOROQUINE SULFATE
     Indication: Rheumatoid arthritis
     Dosage: 200 MILLIGRAM
     Route: 064
     Dates: start: 20200401, end: 20211208
  8. MODERNA COVID-19 VACCINE [Concomitant]
     Active Substance: ELASOMERAN
     Indication: Product used for unknown indication
     Dosage: DOSE 1
     Route: 064
     Dates: start: 20210310, end: 20210310
  9. MODERNA COVID-19 VACCINE [Concomitant]
     Active Substance: ELASOMERAN
     Dosage: DOSE 2
     Route: 064
     Dates: start: 20210407, end: 20210407
  10. MODERNA COVID-19 VACCINE [Concomitant]
     Active Substance: ELASOMERAN
     Dosage: DOSE 3 +
     Route: 064
     Dates: start: 20220208, end: 20220208
  11. PEPCID AC [Concomitant]
     Active Substance: FAMOTIDINE
     Indication: Dyspepsia
     Dosage: 10 MILLIGRAM
     Route: 064
     Dates: start: 20211010, end: 20211208
  12. PEPCID AC [Concomitant]
     Active Substance: FAMOTIDINE
     Indication: Nausea
  13. PREDNISONE [Concomitant]
     Active Substance: PREDNISONE
     Indication: Rheumatoid arthritis
     Dosage: UNK
     Route: 064
     Dates: start: 20191215, end: 20210315
  14. MINERALS\VITAMINS [Concomitant]
     Active Substance: MINERALS\VITAMINS
     Indication: Product used for unknown indication
     Dosage: 1 PILL
     Route: 064
     Dates: start: 20210414, end: 20211208
  15. PROGESTERONE [Concomitant]
     Active Substance: PROGESTERONE
     Indication: Pregnancy
     Dosage: UNK
     Dates: start: 20210426, end: 20210501
  16. DIPHTHERIA AND TETANUS TOXOIDS AND ACELLULAR PERTUSSIS VACCINE ADSORBE [Concomitant]
     Active Substance: DIPHTHERIA AND TETANUS TOXOIDS AND ACELLULAR PERTUSSIS VACCINE ADSORBED
     Indication: Product used for unknown indication
     Dosage: UNK
     Dates: start: 20211019, end: 20211019
  17. TYLENOL [Concomitant]
     Active Substance: ACETAMINOPHEN
     Indication: Back pain
     Dosage: 500 MILLIGRAM
     Route: 064
     Dates: start: 20211006, end: 20211208
  18. TYLENOL [Concomitant]
     Active Substance: ACETAMINOPHEN
     Dosage: 750 MILLIGRAM
     Route: 064
     Dates: start: 20210313, end: 20211005
  19. TYLENOL [Concomitant]
     Active Substance: ACETAMINOPHEN
     Dosage: 1000 MILLIGRAM
     Route: 064
     Dates: start: 20210525, end: 20210601
  20. TYLENOL [Concomitant]
     Active Substance: ACETAMINOPHEN
     Dosage: 1000 MILLIGRAM
     Route: 064
     Dates: start: 20210313, end: 20210524
  21. DOXYLAMINE SUCCINATE [Concomitant]
     Active Substance: DOXYLAMINE SUCCINATE
     Indication: Nausea
     Dosage: 1 PILL
     Route: 064
     Dates: start: 20210515, end: 20211008
  22. VALTREX [Concomitant]
     Active Substance: VALACYCLOVIR HYDROCHLORIDE
     Indication: Herpes virus infection
     Dosage: 500 MILLIGRAM
     Route: 064
     Dates: start: 20210313, end: 20211120
  23. VALTREX [Concomitant]
     Active Substance: VALACYCLOVIR HYDROCHLORIDE
     Dosage: 500 MILLIGRAM
     Route: 064
     Dates: start: 20211121, end: 20211208
  24. VITAMIN B6 [Concomitant]
     Active Substance: PYRIDOXINE HYDROCHLORIDE
     Indication: Nausea
     Dosage: 50 MILLIGRAM
     Dates: start: 20210515, end: 20211208
  25. VITAMIN D3 [Concomitant]
     Active Substance: CHOLECALCIFEROL
     Indication: Vitamin D decreased
     Dosage: UNK
     Route: 064
     Dates: start: 20210313, end: 20211208
  26. VITAMIN E [Concomitant]
     Active Substance: .ALPHA.-TOCOPHEROL
     Indication: Prophylaxis
     Dosage: UNK
     Route: 064
     Dates: start: 20210313, end: 20211208
  27. MONISTAT [Concomitant]
     Active Substance: MICONAZOLE NITRATE
     Indication: Urinary tract infection
     Dosage: 1 SUPPOSITORY A DAY TOPICAL-VAGINAL / ANAL ROUTE
     Route: 064
     Dates: start: 20210504, end: 20210506
  28. MAKENA [Concomitant]
     Active Substance: HYDROXYPROGESTERONE CAPROATE
     Indication: Premature delivery
     Dosage: 1 SHOT, WEEKLY (QW)
     Route: 064
     Dates: start: 20210717, end: 20211120

REACTIONS (4)
  - Atrial septal defect [Unknown]
  - Lung disorder [Unknown]
  - Maternal exposure before pregnancy [Unknown]
  - Maternal exposure during pregnancy [Unknown]

NARRATIVE: CASE EVENT DATE: 20210301
